FAERS Safety Report 9209273 (Version 1)
Quarter: 2013Q2

REPORT INFORMATION
  Report Type: Spontaneous
  Country: PH (occurrence: PH)
  Receive Date: 20130404
  Receipt Date: 20130404
  Transmission Date: 20140414
  Serious: Yes (Death)
  Sender: FDA-Public Use
  Company Number: PH-009507513-1304PHL001357

PATIENT
  Age: 84 Year
  Sex: Female

DRUGS (1)
  1. HYZAAR [Suspect]
     Dosage: 1 DF, QD, 100/12.5MG

REACTIONS (1)
  - Lung disorder [Fatal]
